FAERS Safety Report 9438765 (Version 1)
Quarter: 2013Q3

REPORT INFORMATION
  Report Type: Spontaneous
  Country: DE (occurrence: DE)
  Receive Date: 20130802
  Receipt Date: 20130802
  Transmission Date: 20140515
  Serious: Yes (Other)
  Sender: FDA-Public Use
  Company Number: CHPA2013DE011134

PATIENT
  Sex: Female
  Weight: 65 kg

DRUGS (1)
  1. LAMISIL CREAM [Suspect]
     Indication: TINEA PEDIS
     Dosage: UNK, QD
     Route: 061
     Dates: start: 20130624, end: 20130703

REACTIONS (3)
  - Blister [Recovering/Resolving]
  - Pruritus [Recovered/Resolved]
  - Skin exfoliation [Recovering/Resolving]
